FAERS Safety Report 8353109-4 (Version None)
Quarter: 2012Q2

REPORT INFORMATION
  Report Type: 
  Country: None (occurrence: None)
  Receive Date: 20120511
  Receipt Date: 20120426
  Transmission Date: 20120825
  Serious: Yes (Hospitalization)
  Sender: FDA-Public Use
  Company Number: US-SANOFI-AVENTIS-2012SA029843

PATIENT
  Age: 89 Year
  Sex: Female
  Weight: 139 kg

DRUGS (7)
  1. LEVOTHYROXINE SODIUM [Concomitant]
  2. LASIX [Suspect]
     Route: 048
  3. ATENOLOL [Concomitant]
  4. LASIX [Suspect]
     Route: 048
  5. GLIPIZIDE [Suspect]
     Route: 065
  6. ATORVASTATIN CALCIUM [Suspect]
     Route: 065
     Dates: end: 20120101
  7. ASPIRIN [Concomitant]

REACTIONS (3)
  - HYPERGLYCAEMIA [None]
  - CARDIAC DISORDER [None]
  - LOSS OF CONSCIOUSNESS [None]
